FAERS Safety Report 6335510-3 (Version None)
Quarter: 2009Q3

REPORT INFORMATION
  Report Type: 
  Country: None (occurrence: None)
  Receive Date: 20090831
  Receipt Date: 20090822
  Transmission Date: 20100115
  Serious: Yes (Other)
  Sender: FDA-Public Use
  Company Number: US-AMGEN-US361326

PATIENT
  Sex: Female
  Weight: 74.9 kg

DRUGS (5)
  1. NPLATE [Suspect]
     Indication: IDIOPATHIC THROMBOCYTOPENIC PURPURA
     Dates: start: 20090615
  2. LANTUS [Concomitant]
  3. HUMALOG [Concomitant]
  4. UNSPECIFIED VITAMINS [Concomitant]
  5. UNSPECIFIED MEDICATION [Concomitant]

REACTIONS (3)
  - ALOPECIA [None]
  - PLATELET COUNT INCREASED [None]
  - URINARY TRACT INFECTION [None]
